FAERS Safety Report 8294052-9 (Version None)
Quarter: 2012Q2

REPORT INFORMATION
  Report Type: 
  Country: None (occurrence: None)
  Receive Date: 20120418
  Receipt Date: 20120412
  Transmission Date: 20120825
  Serious: Yes (Hospitalization, Other)
  Sender: FDA-Public Use
  Company Number: SE-PFIZER INC-2012091983

PATIENT
  Age: 30 Year
  Sex: Female
  Weight: 64 kg

DRUGS (6)
  1. CARBAMAZEPINE [Suspect]
     Indication: CONVULSION
  2. LORATADINE [Concomitant]
     Indication: HYPERSENSITIVITY
     Dosage: UNK
     Dates: start: 19980101
  3. SOMATROPIN RDNA [Suspect]
     Dosage: 0.2 MG, 1X/DAY
     Dates: start: 20120222
  4. CARBAMAZEPINE [Suspect]
     Indication: EPILEPSY
     Dosage: UNK
     Route: 048
     Dates: start: 20110616, end: 20111004
  5. OXYMETAZOLINE [Concomitant]
     Indication: HYPERSENSITIVITY
     Dosage: UNK
     Dates: start: 19930101
  6. SOMATROPIN RDNA [Suspect]
     Indication: HYPOPITUITARISM
     Dosage: 0.2 MG, 1X/DAY, 7 INJECTIONS/WEEK
     Dates: start: 20000830, end: 20111019

REACTIONS (1)
  - HEPATIC ENZYME INCREASED [None]
